FAERS Safety Report 24571656 (Version 1)
Quarter: 2024Q4

REPORT INFORMATION
  Report Type: Spontaneous
  Country: US (occurrence: None)
  Receive Date: 20241031
  Receipt Date: 20241031
  Transmission Date: 20250114
  Serious: Yes (Hospitalization)
  Sender: Public
  Company Number: None

PATIENT
  Age: 50 Year
  Sex: Male
  Weight: 104.4 kg

DRUGS (7)
  1. FARXIGA [Suspect]
     Active Substance: DAPAGLIFLOZIN PROPANEDIOL
     Indication: Abscess
     Dosage: 1 TABLET ORAL ?
     Route: 048
     Dates: start: 20240527, end: 20240611
  2. PIPERACILLIN [Suspect]
     Active Substance: PIPERACILLIN
  3. TAZOBACTAM [Suspect]
     Active Substance: TAZOBACTAM
  4. VANCOMYCIN [Suspect]
     Active Substance: VANCOMYCIN
  5. PREDNISONE [Suspect]
     Active Substance: PREDNISONE
  6. IRON [Concomitant]
     Active Substance: IRON
  7. VITAMINS [Concomitant]
     Active Substance: VITAMINS

REACTIONS (24)
  - Staphylococcal infection [None]
  - Renal failure [None]
  - Dehydration [None]
  - Brain fog [None]
  - Disturbance in attention [None]
  - Confusional state [None]
  - Fatigue [None]
  - Memory impairment [None]
  - Thinking abnormal [None]
  - Mental fatigue [None]
  - Aphasia [None]
  - Inflammation [None]
  - Asthenia [None]
  - Anaemia [None]
  - Tachycardia [None]
  - Hypotension [None]
  - Nausea [None]
  - Vomiting [None]
  - Decreased appetite [None]
  - Contraindication to medical treatment [None]
  - Impaired quality of life [None]
  - Impaired work ability [None]
  - Weight decreased [None]
  - Muscle atrophy [None]

NARRATIVE: CASE EVENT DATE: 20240612
